FAERS Safety Report 4515574-X (Version None)
Quarter: 2004Q4

REPORT INFORMATION
  Report Type: 
  Country: None (occurrence: None)
  Receive Date: 20041126
  Receipt Date: 20041113
  Transmission Date: 20050328
  Serious: Yes (Hospitalization, Other)
  Sender: FDA-Public Use
  Company Number: 2004092666

PATIENT
  Age: 62 Year
  Sex: Male
  Weight: 97.5234 kg

DRUGS (3)
  1. LIPITOR [Suspect]
     Indication: BLOOD CHOLESTEROL INCREASED
     Dosage: 10 MG (10 MG, 1 IN 1 D), ORAL
     Route: 048
     Dates: start: 20010101, end: 20040101
  2. ALL OTHER THERAPEUTIC PRODUCTS) (ALL OTHER THERAPEUTIC PRODUCTS) [Concomitant]
  3. ASPIRIN [Concomitant]

REACTIONS (2)
  - HERNIA [None]
  - MYALGIA [None]
